FAERS Safety Report 9279559 (Version 1)
Quarter: 2013Q2

REPORT INFORMATION
  Report Type: Report from Study
  Country: BR (occurrence: BR)
  Receive Date: 20130509
  Receipt Date: 20130509
  Transmission Date: 20140414
  Serious: Yes (Other)
  Sender: FDA-Public Use
  Company Number: BR-ROCHE-1222632

PATIENT
  Sex: Female
  Weight: 70 kg

DRUGS (2)
  1. MABTHERA [Suspect]
     Indication: RHEUMATOID ARTHRITIS
     Route: 042
     Dates: start: 20100501
  2. ANTIALLERGIC AGENTS NOS [Concomitant]
     Indication: PREMEDICATION

REACTIONS (2)
  - Weight increased [Recovering/Resolving]
  - Vomiting [Unknown]
